FAERS Safety Report 22332110 (Version 1)
Quarter: 2023Q2

REPORT INFORMATION
  Report Type: Spontaneous
  Country: RU (occurrence: RU)
  Receive Date: 20230517
  Receipt Date: 20230517
  Transmission Date: 20230722
  Serious: Yes (Hospitalization)
  Sender: FDA-Public Use
  Company Number: RU-BAYER-2023A068126

PATIENT
  Age: 35 Year
  Sex: Female
  Weight: 65 kg

DRUGS (2)
  1. ULTRAVIST [Suspect]
     Active Substance: IOPROMIDE
     Indication: Computerised tomogram thorax
     Dosage: 100 ML, ONCE
     Route: 042
     Dates: start: 20230510, end: 20230510
  2. ULTRAVIST [Suspect]
     Active Substance: IOPROMIDE
     Indication: Computerised tomogram

REACTIONS (6)
  - Pyrexia [None]
  - Paraesthesia [None]
  - Swelling face [None]
  - Nausea [None]
  - Vomiting [None]
  - Blood pressure decreased [None]

NARRATIVE: CASE EVENT DATE: 20230510
